FAERS Safety Report 20716602 (Version 3)
Quarter: 2022Q3

REPORT INFORMATION
  Report Type: Report from Study
  Country: US (occurrence: US)
  Receive Date: 20220416
  Receipt Date: 20220716
  Transmission Date: 20221027
  Serious: Yes (Other)
  Sender: FDA-Public Use
  Company Number: US-AUROBINDO-AUR-APL-2022-012326

PATIENT
  Sex: Female

DRUGS (7)
  1. BELINOSTAT [Suspect]
     Active Substance: BELINOSTAT
     Indication: Chondrosarcoma
     Dosage: 9320 MILLIGRAM
     Route: 065
     Dates: start: 20220124
  2. BELINOSTAT [Suspect]
     Active Substance: BELINOSTAT
     Dosage: 9400 MILLIGRAM
     Route: 065
     Dates: start: 20210314
  3. BELINOSTAT [Suspect]
     Active Substance: BELINOSTAT
     Dosage: 5640 UNK
     Route: 065
     Dates: start: 20220509
  4. DECITABINE [Suspect]
     Active Substance: DECITABINE
     Indication: Chondrosarcoma
     Dosage: 135 MILLIGRAM
     Route: 065
  5. DECITABINE [Suspect]
     Active Substance: DECITABINE
     Dosage: 675 UNK
     Route: 065
     Dates: start: 20220124
  6. DECITABINE [Suspect]
     Active Substance: DECITABINE
     Dosage: 675 UNK
     Route: 065
     Dates: start: 20220314
  7. DECITABINE [Suspect]
     Active Substance: DECITABINE
     Dosage: 540 UNK
     Route: 065

REACTIONS (5)
  - Neutrophil count decreased [Unknown]
  - White blood cell count decreased [Unknown]
  - Lymphocyte count decreased [Unknown]
  - Platelet count decreased [Unknown]
  - Infusion related reaction [Unknown]

NARRATIVE: CASE EVENT DATE: 20220124
